FAERS Safety Report 9665471 (Version 1)
Quarter: 2013Q4

REPORT INFORMATION
  Report Type: Spontaneous
  Country: US (occurrence: US)
  Receive Date: 20131104
  Receipt Date: 20131104
  Transmission Date: 20140711
  Serious: No
  Sender: FDA-Public Use
  Company Number: US-PFIZER INC-2013312593

PATIENT
  Age: 54 Year
  Sex: Female
  Weight: 54.42 kg

DRUGS (6)
  1. CELEBREX [Suspect]
     Indication: OSTEOARTHRITIS
     Dosage: 200 MG, 1X/DAY
  2. CELEBREX [Suspect]
     Indication: RHEUMATOID ARTHRITIS
     Dosage: 200 MG, 2X/DAY
     Dates: end: 2013
  3. CELEBREX [Suspect]
     Dosage: 200 MG, 2X/DAY
     Dates: start: 201310
  4. MICONAZOLE [Suspect]
     Dosage: UNK
     Route: 048
  5. CHONDROITIN/GLUCOSAMINE [Concomitant]
     Indication: OSTEOARTHRITIS
     Dosage: UNK
  6. CHONDROITIN/GLUCOSAMINE [Concomitant]
     Indication: RHEUMATOID ARTHRITIS

REACTIONS (1)
  - Drug ineffective [Unknown]
